FAERS Safety Report 19705819 (Version 1)
Quarter: 2021Q3

REPORT INFORMATION
  Report Type: Spontaneous
  Country: US (occurrence: US)
  Receive Date: 20210817
  Receipt Date: 20210817
  Transmission Date: 20211014
  Serious: No
  Sender: FDA-Public Use
  Company Number: US-UNICHEM PHARMACEUTICALS (USA) INC-UCM202010-001289

PATIENT
  Sex: Female

DRUGS (1)
  1. BISOPROLOL FUMARATE+HYDROCHLOROTHIAZIDE [Suspect]
     Active Substance: BISOPROLOL FUMARATE\HYDROCHLOROTHIAZIDE
     Indication: HYPERTENSION
     Dosage: 2.5/6.25 MG

REACTIONS (2)
  - Pulse absent [Unknown]
  - Blood pressure fluctuation [Unknown]
